FAERS Safety Report 11368233 (Version 1)
Quarter: 2015Q3

REPORT INFORMATION
  Report Type: Spontaneous
  Country: GB (occurrence: None)
  Receive Date: 20150810
  Receipt Date: 20150810
  Transmission Date: 20151125
  Serious: Yes (Disabling)
  Sender: FDA-Public Use
  Company Number: GB-H14001-15-0146

PATIENT
  Age: 31 Year
  Sex: Male

DRUGS (4)
  1. VITAMIN D (VITAMIN D NOS) (UNKNOWN) (VITAMIN D NOS) [Concomitant]
  2. COD LIVER OIL (COD-LIVER OIL) (UNKNOWN) (COD-LIVER OIL) [Concomitant]
  3. PARACETAMOL (PARACETAMOL) (UNKNOWN) (PARACETAMOL) [Concomitant]
  4. CIPROFLOXACIN (CIPROFLOXACIN) (UNKNOWN) (CIPROFLOXACIN) [Suspect]
     Active Substance: CIPROFLOXACIN
     Indication: PROSTATITIS
     Dates: start: 20150323, end: 20150412

REACTIONS (6)
  - Muscle spasms [None]
  - Back pain [None]
  - Malaise [None]
  - Muscle fatigue [None]
  - Myalgia [None]
  - Dizziness [None]

NARRATIVE: CASE EVENT DATE: 20150327
